FAERS Safety Report 4622077-0 (Version None)
Quarter: 2005Q1

REPORT INFORMATION
  Report Type: 
  Country: None (occurrence: None)
  Receive Date: 20050329
  Receipt Date: 20050314
  Transmission Date: 20050727
  Serious: Yes (Hospitalization, Other)
  Sender: FDA-Public Use
  Company Number: 2005AL001035

PATIENT
  Age: 64 Year
  Sex: Female
  Weight: 58.9676 kg

DRUGS (4)
  1. TICLOPIDINE HCL [Suspect]
     Indication: STENT PLACEMENT
     Dosage: 250 MG; BID; PO
     Route: 048
     Dates: start: 20040519, end: 20040521
  2. PLAVIX [Suspect]
     Indication: STENT PLACEMENT
     Dates: start: 20040501
  3. ZANTAC [Concomitant]
  4. PRILOSEC [Concomitant]

REACTIONS (10)
  - BLOOD PRESSURE INCREASED [None]
  - CHEST PAIN [None]
  - DRUG ERUPTION [None]
  - ELECTROCARDIOGRAM ABNORMAL [None]
  - GENERAL PHYSICAL HEALTH DETERIORATION [None]
  - HEART INJURY [None]
  - PAIN [None]
  - PAIN IN JAW [None]
  - PHOBIA [None]
  - RASH [None]
